FAERS Safety Report 7889554-0 (Version None)
Quarter: 2011Q4

REPORT INFORMATION
  Report Type: 
  Country: None (occurrence: None)
  Receive Date: 20111103
  Receipt Date: 20110325
  Transmission Date: 20120403
  Serious: Yes (Other)
  Sender: FDA-Public Use
  Company Number: US-BRISTOL-MYERS SQUIBB COMPANY-15500887

PATIENT
  Age: 41 Year
  Sex: Male
  Weight: 91 kg

DRUGS (1)
  1. KENALOG-40 [Suspect]
     Indication: PAIN IN EXTREMITY
     Dosage: 1/16 CC KENALOG,3 CC
     Route: 014
     Dates: start: 20101213

REACTIONS (3)
  - SYNCOPE [None]
  - DIZZINESS [None]
  - CARDIAC DISORDER [None]
